FAERS Safety Report 9026414 (Version 1)
Quarter: 2013Q1

REPORT INFORMATION
  Report Type: Spontaneous
  Country: US (occurrence: US)
  Receive Date: 20130123
  Receipt Date: 20130123
  Transmission Date: 20140127
  Serious: Yes (Death)
  Sender: FDA-Public Use
  Company Number: US-JNJFOC-20130110510

PATIENT
  Sex: Male

DRUGS (2)
  1. TYLENOL ARTHRITIS PAIN ER [Suspect]
     Route: 065
  2. TYLENOL ARTHRITIS PAIN ER [Suspect]
     Indication: PAIN IN EXTREMITY
     Dosage: 650MG
     Route: 065

REACTIONS (1)
  - Overdose [Fatal]
